FAERS Safety Report 10385461 (Version 1)
Quarter: 2014Q3

REPORT INFORMATION
  Report Type: Spontaneous
  Country: US (occurrence: US)
  Receive Date: 20140814
  Receipt Date: 20140814
  Transmission Date: 20150326
  Serious: No
  Sender: FDA-Public Use
  Company Number: US-BAYER-2014-117150

PATIENT
  Sex: Female

DRUGS (3)
  1. CLIMARA [Suspect]
     Active Substance: ESTRADIOL
     Dosage: UNK
     Dates: start: 2004, end: 2005
  2. CLIMARA [Suspect]
     Active Substance: ESTRADIOL
     Dosage: UNK
     Route: 062
     Dates: start: 2005
  3. CLIMARA [Suspect]
     Active Substance: ESTRADIOL
     Route: 062

REACTIONS (6)
  - Breast pain [Recovered/Resolved]
  - Product adhesion issue [None]
  - Memory impairment [Not Recovered/Not Resolved]
  - Malaise [None]
  - Fibrocystic breast disease [None]
  - Anxiety disorder [Not Recovered/Not Resolved]

NARRATIVE: CASE EVENT DATE: 2014
